FAERS Safety Report 7229644-9 (Version None)
Quarter: 2011Q1

REPORT INFORMATION
  Report Type: 
  Country: None (occurrence: None)
  Receive Date: 20110117
  Receipt Date: 20110110
  Transmission Date: 20110831
  Serious: Yes (Hospitalization)
  Sender: FDA-Public Use
  Company Number: PHHY2010US71850

PATIENT
  Sex: Female

DRUGS (9)
  1. XANAX [Concomitant]
  2. ARICEPT [Concomitant]
  3. EXELON [Suspect]
     Dosage: 4.6 MG/ 24 HR, 2 PATCH
     Route: 062
  4. EXELON [Suspect]
     Indication: DEMENTIA ALZHEIMER'S TYPE
     Dosage: 9.5 MG /24 HR
     Route: 062
     Dates: start: 20101018, end: 20101021
  5. TOPROL-XL [Concomitant]
     Dosage: UNK
  6. WELLBATRIN [Concomitant]
     Dosage: 150 MG, UNK
  7. LEXAPRO [Concomitant]
     Dosage: 20 MG, QD
  8. NAMENDA [Concomitant]
     Dosage: UNK
  9. ALPRAZOLAM [Concomitant]
     Dosage: UNK

REACTIONS (10)
  - DELUSION [None]
  - AGITATION [None]
  - ANXIETY [None]
  - WRONG TECHNIQUE IN DRUG USAGE PROCESS [None]
  - ABNORMAL BEHAVIOUR [None]
  - DEMENTIA [None]
  - AFFECT LABILITY [None]
  - CRYING [None]
  - LETHARGY [None]
  - MIDDLE INSOMNIA [None]
